FAERS Safety Report 7831865-9 (Version None)
Quarter: 2011Q4

REPORT INFORMATION
  Report Type: 
  Country: None (occurrence: None)
  Receive Date: 20111021
  Receipt Date: 20111013
  Transmission Date: 20120403
  Serious: Yes (Death)
  Sender: FDA-Public Use
  Company Number: NL-GENZYME-CERZ-1002277

PATIENT
  Sex: Female
  Weight: 60 kg

DRUGS (1)
  1. CEREZYME [Suspect]
     Indication: GAUCHER'S DISEASE
     Dosage: 26.7 U/KG, Q2W
     Route: 042
     Dates: start: 20030422

REACTIONS (1)
  - METASTASIS [None]
